FAERS Safety Report 7788834-7 (Version None)
Quarter: 2011Q3

REPORT INFORMATION
  Report Type: 
  Country: None (occurrence: None)
  Receive Date: 20110930
  Receipt Date: 20110921
  Transmission Date: 20111222
  Serious: Yes (Other)
  Sender: FDA-Public Use
  Company Number: JP-PFIZER INC-2011064968

PATIENT
  Sex: Male

DRUGS (3)
  1. TAMSULOSIN HCL [Concomitant]
     Indication: PROSTATIC DISORDER
  2. CHOREITOU [Concomitant]
     Indication: PROSTATIC DISORDER
  3. CORTRIL [Suspect]
     Indication: ADDISON'S DISEASE
     Dosage: 15 MG, 5MG, 2X/DAY
     Route: 048
     Dates: start: 20090601

REACTIONS (6)
  - POLLAKIURIA [None]
  - CATARACT [None]
  - HYPERTENSION [None]
  - FATIGUE [None]
  - GLAUCOMA [None]
  - DRY EYE [None]
